FAERS Safety Report 5296605-9 (Version None)
Quarter: 2007Q2

REPORT INFORMATION
  Report Type: 
  Country: None (occurrence: None)
  Receive Date: 20070413
  Receipt Date: 20070402
  Transmission Date: 20071010
  Serious: Yes (Other)
  Sender: FDA-Public Use
  Company Number: US-SHR-US-2007-009313

PATIENT
  Age: 39 Year
  Sex: Female
  Weight: 63.492 kg

DRUGS (10)
  1. BETASERON [Suspect]
     Indication: SECONDARY PROGRESSIVE MULTIPLE SCLEROSIS
     Dosage: 8 MIU, EVERY 2D
     Route: 058
     Dates: start: 20040229, end: 20050115
  2. BETASERON [Suspect]
     Dosage: 8 MIU, EVERY 2D
     Route: 058
     Dates: start: 20050415, end: 20070228
  3. BETASERON [Suspect]
     Dosage: 8 MIU, EVERY 2D
     Route: 058
     Dates: start: 20070312
  4. NEURONTIN [Concomitant]
     Dosage: 600 MG/D, UNK
  5. ZANAFLEX [Concomitant]
     Dosage: 2 MG, 3X/DAY
  6. ADDERALL 10 [Concomitant]
     Dosage: 20 MG, 2X/DAY
  7. PERCOCET [Concomitant]
     Dosage: 5 MG, AS REQ'D
  8. HYZAAR [Concomitant]
     Dosage: 20-100 QD
  9. VITAMIN B COMPLEX CAP [Concomitant]
  10. OSTEO BI-FLEX [Concomitant]

REACTIONS (2)
  - DRUG EXPOSURE DURING PREGNANCY [None]
  - FOETAL HEART RATE ABNORMAL [None]
